FAERS Safety Report 4846122-2 (Version None)
Quarter: 2005Q4

REPORT INFORMATION
  Report Type: 
  Country: None (occurrence: None)
  Receive Date: 20051130
  Receipt Date: 20051122
  Transmission Date: 20060501
  Serious: Yes (Death, Other)
  Sender: FDA-Public Use
  Company Number: 2005US001717

PATIENT
  Age: 60 Year
  Sex: Male

DRUGS (3)
  1. PROGRAF [Suspect]
     Indication: PROPHYLAXIS AGAINST TRANSPLANT REJECTION
     Dosage: ORAL
     Route: 048
  2. MYCOPHENOLATE MOFETIL (MYCOPHENOLATE MOFETIL) [Concomitant]
  3. MEDROL (METHLYPRDNISOLONE) [Concomitant]

REACTIONS (3)
  - PARATHYROID TUMOUR MALIGNANT [None]
  - RESPIRATORY DISORDER [None]
  - SQUAMOUS CELL CARCINOMA [None]
